FAERS Safety Report 9851253 (Version 3)
Quarter: 2014Q2

REPORT INFORMATION
  Report Type: Report from Study
  Country: TR (occurrence: TR)
  Receive Date: 20140128
  Receipt Date: 20140429
  Transmission Date: 20141212
  Serious: Yes (Other)
  Sender: FDA-Public Use
  Company Number: TR-ABBVIE-14P-161-1193800-00

PATIENT
  Age: 58 Year
  Sex: Female
  Weight: 64 kg

DRUGS (4)
  1. HUMIRA [Suspect]
     Indication: ANKYLOSING SPONDYLITIS
     Route: 058
     Dates: start: 20130321, end: 20140117
  2. HUMIRA [Suspect]
     Dates: start: 20140213
  3. HUMIRA [Suspect]
     Dates: start: 20140417
  4. LIPITOR [Concomitant]
     Indication: BLOOD CHOLESTEROL ABNORMAL
     Route: 048

REACTIONS (2)
  - Road traffic accident [Recovered/Resolved]
  - Upper limb fracture [Recovered/Resolved]
